FAERS Safety Report 15546761 (Version 1)
Quarter: 2018Q4

REPORT INFORMATION
  Report Type: Spontaneous
  Country: US (occurrence: US)
  Receive Date: 20181024
  Receipt Date: 20181024
  Transmission Date: 20190205
  Serious: No
  Sender: FDA-Public Use
  Company Number: None

PATIENT
  Sex: Male

DRUGS (1)
  1. GUANFACINE 3 MG [Suspect]
     Active Substance: GUANFACINE

REACTIONS (1)
  - Psychomotor hyperactivity [None]
